FAERS Safety Report 5233084-1 (Version None)
Quarter: 2007Q1

REPORT INFORMATION
  Report Type: 
  Country: None (occurrence: None)
  Receive Date: 20070207
  Receipt Date: 20070126
  Transmission Date: 20070707
  Serious: Yes (Life-Threatening, Hospitalization)
  Sender: FDA-Public Use
  Company Number: DE-PFIZER INC-2006105111

PATIENT
  Sex: Male
  Weight: 88 kg

DRUGS (11)
  1. SUTENT [Suspect]
     Indication: METASTATIC RENAL CELL CARCINOMA
     Route: 048
     Dates: start: 20060706, end: 20060822
  2. METOPROLOL SUCCINATE [Concomitant]
  3. RAMIPRIL [Concomitant]
     Dates: end: 20060801
  4. THYROXIN [Concomitant]
  5. HYDROCORTISONE [Concomitant]
     Dates: start: 20060801
  6. CALCITRIOL [Concomitant]
     Dates: start: 20060801
  7. CALCIUM [Concomitant]
     Dates: start: 20060801
  8. POTASSIUM ACETATE [Concomitant]
     Dates: start: 20060801
  9. MAGNESIUM [Concomitant]
  10. IRESSA [Concomitant]
     Dates: start: 20050901, end: 20060201
  11. ERLOTINIB [Concomitant]

REACTIONS (3)
  - ADRENOCORTICAL INSUFFICIENCY ACUTE [None]
  - HYPONATRAEMIA [None]
  - RENAL FAILURE ACUTE [None]
